FAERS Safety Report 18629593 (Version 1)
Quarter: 2020Q4

REPORT INFORMATION
  Report Type: Spontaneous
  Country: US (occurrence: US)
  Receive Date: 20201217
  Receipt Date: 20201217
  Transmission Date: 20210114
  Serious: No
  Sender: FDA-Public Use
  Company Number: US-PFIZER INC-2017430703

PATIENT
  Age: 58 Year
  Sex: Female

DRUGS (1)
  1. LYRICA [Suspect]
     Active Substance: PREGABALIN
     Dosage: 50 MG, 3X/DAY (TAKE 1 CAPSULE BY MOUTH THREE (3) TIMES DAILY)
     Route: 048
     Dates: start: 20171003

REACTIONS (1)
  - Loss of personal independence in daily activities [Unknown]
